FAERS Safety Report 18709903 (Version 2)
Quarter: 2021Q1

REPORT INFORMATION
  Report Type: Spontaneous
  Country: US (occurrence: US)
  Receive Date: 20210107
  Receipt Date: 20210212
  Transmission Date: 20210419
  Serious: No
  Sender: FDA-Public Use
  Company Number: US-JNJFOC-20201242110

PATIENT
  Sex: Female

DRUGS (2)
  1. WOMENS ROGAINE UNSCENTED [Suspect]
     Active Substance: MINOXIDIL
     Indication: LICHEN PLANOPILARIS
     Route: 061
     Dates: start: 202011
  2. LAMICTAL [Concomitant]
     Active Substance: LAMOTRIGINE
     Indication: SEIZURE
     Route: 065

REACTIONS (13)
  - Pain in extremity [Recovered/Resolved]
  - Poor quality product administered [Unknown]
  - Chest discomfort [Recovered/Resolved]
  - Fatigue [Recovered/Resolved]
  - Dizziness [Recovered/Resolved]
  - Dyspnoea [Recovered/Resolved]
  - Off label use [Unknown]
  - Limb discomfort [Recovered/Resolved]
  - Palpitations [Recovered/Resolved]
  - Migraine [Recovered/Resolved]
  - Chest pain [Recovered/Resolved]
  - Product use in unapproved indication [Unknown]
  - Product formulation issue [Unknown]

NARRATIVE: CASE EVENT DATE: 202011
